FAERS Safety Report 5705460-1 (Version None)
Quarter: 2008Q2

REPORT INFORMATION
  Report Type: 
  Country: None (occurrence: None)
  Receive Date: 20080415
  Receipt Date: 20080415
  Transmission Date: 20081010
  Serious: Yes (Hospitalization, Disabling)
  Sender: FDA-Public Use
  Company Number: None

PATIENT
  Age: 53 Year
  Sex: Female
  Weight: 63.5036 kg

DRUGS (2)
  1. HEPARIN [Suspect]
     Indication: BLOOD DISORDER
     Dosage: 5/ML EVERYDAY
     Dates: start: 20080320, end: 20080324
  2. HEPARIN [Suspect]
     Indication: INFECTION
     Dosage: 5/ML EVERYDAY
     Dates: start: 20080320, end: 20080324

REACTIONS (4)
  - ASTHENIA [None]
  - FATIGUE [None]
  - PRURITUS GENERALISED [None]
  - THROMBOSIS [None]
